FAERS Safety Report 19587494 (Version 3)
Quarter: 2021Q3

REPORT INFORMATION
  Report Type: Spontaneous
  Country: JP (occurrence: JP)
  Receive Date: 20210721
  Receipt Date: 20210826
  Transmission Date: 20211014
  Serious: Yes (Hospitalization, Other)
  Sender: FDA-Public Use
  Company Number: NVSJ2021JP010633

PATIENT
  Age: 85 Year
  Sex: Female

DRUGS (2)
  1. TAFINLAR [Suspect]
     Active Substance: DABRAFENIB MESYLATE
     Indication: LUNG ADENOCARCINOMA STAGE IV
     Dosage: UNK
     Route: 048
     Dates: start: 20210602, end: 20210707
  2. MEKINIST [Suspect]
     Active Substance: TRAMETINIB DIMETHYL SULFOXIDE
     Indication: LUNG ADENOCARCINOMA STAGE IV
     Dosage: UNK
     Route: 048
     Dates: start: 20210602, end: 20210707

REACTIONS (11)
  - Troponin abnormal [Unknown]
  - Stress cardiomyopathy [Unknown]
  - Myoglobin blood increased [Unknown]
  - Oxygen saturation decreased [Unknown]
  - Lung adenocarcinoma stage IV [Unknown]
  - Cardiomegaly [Unknown]
  - C-reactive protein increased [Unknown]
  - Pneumonia [Unknown]
  - Pyrexia [Recovered/Resolved]
  - Pyrexia [Unknown]
  - Malignant neoplasm progression [Unknown]

NARRATIVE: CASE EVENT DATE: 20210706
